FAERS Safety Report 7576885-7 (Version None)
Quarter: 2011Q2

REPORT INFORMATION
  Report Type: 
  Country: None (occurrence: None)
  Receive Date: 20110628
  Receipt Date: 20110519
  Transmission Date: 20111010
  Serious: No
  Sender: FDA-Public Use
  Company Number: US-BAYER-2011-044269

PATIENT
  Age: 84 Year
  Sex: Female
  Weight: 82 kg

DRUGS (4)
  1. LOTREL [Concomitant]
  2. LABETALOL HCL [Concomitant]
  3. CLONIDINE [Concomitant]
  4. ALEVE (CAPLET) [Suspect]
     Indication: ARTHRITIS
     Dosage: 1 DF, BID
     Route: 048
     Dates: start: 20110512, end: 20110519

REACTIONS (1)
  - SOMNOLENCE [None]
